FAERS Safety Report 5218437-X (Version None)
Quarter: 2007Q1

REPORT INFORMATION
  Report Type: 
  Country: None (occurrence: None)
  Receive Date: 20061201
  Receipt Date: 20060927
  Transmission Date: 20070707
  Serious: Yes (Other)
  Sender: FDA-Public Use
  Company Number: PHEH2006US09994

PATIENT
  Age: 57 Year
  Sex: Female
  Weight: 54 kg

DRUGS (11)
  1. LAMISIL [Suspect]
     Indication: NAIL TINEA
     Dosage: 250 MG, QD, ORAL
     Route: 048
     Dates: start: 20051101, end: 20060201
  2. LANTUS [Concomitant]
  3. HUMALOG [Concomitant]
  4. ONE-A-DAY (ASCORBIC ACID, CYANOCOBALAMIN, ERGOCALCIFEROL, NICOTINAMIDE [Concomitant]
  5. EVISTA [Concomitant]
  6. CALCIUM (CALCIUM) [Concomitant]
  7. VITAMIN B (NO INGREDIENTS/SUBSTANCES) [Concomitant]
  8. VITAMIN E [Concomitant]
  9. NAPROXEN [Concomitant]
  10. ASPIRIN [Concomitant]
  11. SOY (SOY) CAPSULE [Concomitant]

REACTIONS (2)
  - ALOPECIA TOTALIS [None]
  - ALOPECIA UNIVERSALIS [None]
